FAERS Safety Report 8163890 (Version 4)
Quarter: 2014Q3

REPORT INFORMATION
  Report Type: Spontaneous
  Country: US (occurrence: US)
  Receive Date: 20110930
  Receipt Date: 20140702
  Transmission Date: 20150326
  Serious: Yes (Other)
  Sender: FDA-Public Use
  Company Number: US-ASTRAZENECA-2011SE37533

PATIENT
  Age: 83 Year
  Sex: Female

DRUGS (6)
  1. CRESTOR [Suspect]
     Active Substance: ROSUVASTATIN CALCIUM
     Dosage: CUT BACK HER DAILY DOSE OF CRESTOR FROM 10 MG TO 5 MG ON HER OWN
     Route: 048
  2. TOPROL XL [Suspect]
     Active Substance: METOPROLOL SUCCINATE
     Route: 048
  3. CRESTOR [Suspect]
     Active Substance: ROSUVASTATIN CALCIUM
     Route: 048
  4. ATACAND [Suspect]
     Active Substance: CANDESARTAN CILEXETIL
     Route: 048
  5. ATACAND [Suspect]
     Active Substance: CANDESARTAN CILEXETIL
     Route: 048
  6. ARIMIDEX [Suspect]
     Active Substance: ANASTROZOLE
     Route: 048

REACTIONS (5)
  - Hypertension [Unknown]
  - Neoplasm malignant [Unknown]
  - Intentional product misuse [Unknown]
  - Malaise [Unknown]
  - Drug dose omission [Unknown]
